FAERS Safety Report 11874676 (Version 1)
Quarter: 2015Q4

REPORT INFORMATION
  Report Type: Spontaneous
  Country: US (occurrence: None)
  Receive Date: 20151228
  Receipt Date: 20151228
  Transmission Date: 20160305
  Serious: Yes (Hospitalization, Disabling, Other)
  Sender: FDA-Public Use
  Company Number: None

PATIENT
  Age: 62 Year
  Sex: Female
  Weight: 49.9 kg

DRUGS (5)
  1. CIPRO [Suspect]
     Active Substance: CIPROFLOXACIN HYDROCHLORIDE
     Indication: URINARY TRACT INFECTION
     Route: 048
     Dates: start: 20150906, end: 20150910
  2. ADVIL [Concomitant]
     Active Substance: IBUPROFEN
  3. PROBIOTICS [Concomitant]
     Active Substance: PROBIOTICS NOS
  4. TOPROL XL [Concomitant]
     Active Substance: METOPROLOL SUCCINATE
  5. LYRICA [Concomitant]
     Active Substance: PREGABALIN

REACTIONS (14)
  - Muscle spasms [None]
  - Tremor [None]
  - Visual acuity reduced [None]
  - Bronchiectasis [None]
  - Asthma [None]
  - Pain [None]
  - Myalgia [None]
  - Fatigue [None]
  - Feeling abnormal [None]
  - Vitreous detachment [None]
  - Muscular weakness [None]
  - Decreased appetite [None]
  - Lethargy [None]
  - Hyperhidrosis [None]

NARRATIVE: CASE EVENT DATE: 20150906
